FAERS Safety Report 24216799 (Version 1)
Quarter: 2024Q3

REPORT INFORMATION
  Report Type: Spontaneous
  Country: US (occurrence: US)
  Receive Date: 20240816
  Receipt Date: 20240816
  Transmission Date: 20241016
  Serious: Yes (Hospitalization, Other)
  Sender: ZYDUS PHARM
  Company Number: US-CADILA HEALTHCARE LIMITED-US-ZYDUS-110850

PATIENT

DRUGS (3)
  1. ACETAMINOPHEN [Suspect]
     Active Substance: ACETAMINOPHEN
     Indication: Product used for unknown indication
     Dosage: 195 GRAM
     Route: 065
  2. ACETYLCYSTEINE [Suspect]
     Active Substance: ACETYLCYSTEINE
     Indication: Overdose
     Dosage: UNK
     Route: 065
  3. CHARCOAL [Concomitant]
     Active Substance: ACTIVATED CHARCOAL
     Indication: Overdose
     Dosage: UNK
     Route: 065

REACTIONS (6)
  - International normalised ratio increased [Recovered/Resolved]
  - Mental impairment [Recovering/Resolving]
  - Transaminases increased [Recovered/Resolved]
  - Blood lactic acid increased [Unknown]
  - Overdose [Unknown]
  - Drug ineffective [Unknown]
